FAERS Safety Report 11283079 (Version 1)
Quarter: 2015Q3

REPORT INFORMATION
  Report Type: Spontaneous
  Country: US (occurrence: None)
  Receive Date: 20150717
  Receipt Date: 20150717
  Transmission Date: 20151125
  Serious: Yes (Life-Threatening, Other)
  Sender: FDA-Public Use
  Company Number: None

PATIENT
  Age: 16 Year
  Sex: Female
  Weight: 53.07 kg

DRUGS (2)
  1. SKIN HAIR AND NAIL VITAMIN [Concomitant]
  2. NEXPLANON [Suspect]
     Active Substance: ETONOGESTREL

REACTIONS (7)
  - Mood swings [None]
  - Depression [None]
  - Self esteem decreased [None]
  - Menorrhagia [None]
  - Fatigue [None]
  - Asthenia [None]
  - Decreased appetite [None]
